FAERS Safety Report 9275134 (Version 1)
Quarter: 2012Q4

REPORT INFORMATION
  Report Type: Spontaneous
  Country: JP (occurrence: None)
  Receive Date: 20121024
  Receipt Date: 20121024
  Transmission Date: 20130627
  Serious: Yes (Other)
  Sender: FDA-Public Use
  Company Number: 2008JP005106

PATIENT
  Age: 66 Year
  Sex: Female
  Weight: 61 kg

DRUGS (10)
  1. TACROLIMUS [Suspect]
     Indication: LUPUS NEPHRITIS
     Route: 048
     Dates: start: 20070807
  2. MEDROL (METHYLPREDNISOLONE) [Concomitant]
  3. HYPEN (ETODOLAC) [Concomitant]
  4. NU-LOTAN (LOSARTAN POTASSIUM) [Concomitant]
  5. MARZULENE-S (LEVOGLUTAMIDE, SODIUM GUALENATE) [Concomitant]
  6. BIO-THREE (BACILLUS MESENTERICUS, CLOSTRIDIUM BUTYRICUM, STREPTOCOCCUS FAECALIS) [Concomitant]
  7. TERNELIN (TIZANIDINE HYDROCHLORIDE) [Concomitant]
  8. PLETAAL (CILOSTAZOL) TABLET [Concomitant]
  9. OPALMON (LIMAPROST ALFADEX) [Concomitant]
  10. DEPAS (ETIZOLAM) [Concomitant]

REACTIONS (4)
  - Haemorrhoids [None]
  - Insomnia [None]
  - Beta-N-acetyl-D-glucosaminidase increased [None]
  - Lumbar spinal stenosis [None]
